FAERS Safety Report 4682712-8 (Version None)
Quarter: 2005Q2

REPORT INFORMATION
  Report Type: 
  Country: None (occurrence: None)
  Receive Date: 20050531
  Receipt Date: 20050214
  Transmission Date: 20051028
  Serious: No
  Sender: FDA-Public Use
  Company Number: 2005BI001553

PATIENT
  Age: 77 Year
  Sex: Female

DRUGS (9)
  1. AMEVIVE [Suspect]
     Indication: PSORIASIS
     Dosage: 15 MG; QW; IM
     Route: 030
     Dates: start: 20041214, end: 20050118
  2. AMEVIVE [Suspect]
     Indication: PSORIASIS
     Dosage: 15 MG; QW; IM
     Route: 030
     Dates: start: 20050125
  3. TOPROL-XL [Concomitant]
  4. ATIVAN [Concomitant]
  5. AMBIEN [Concomitant]
  6. EFFEXOR [Concomitant]
  7. DEPAKOTE [Concomitant]
  8. ELAVIL [Concomitant]
  9. PROCARDIA [Concomitant]

REACTIONS (1)
  - TREMOR [None]
